FAERS Safety Report 9698447 (Version 1)
Quarter: 2013Q4

REPORT INFORMATION
  Report Type: Spontaneous
  Country: US (occurrence: US)
  Receive Date: 20131120
  Receipt Date: 20131120
  Transmission Date: 20140711
  Serious: Yes (Hospitalization)
  Sender: FDA-Public Use
  Company Number: US-BAXTER-2013BAX045407

PATIENT
  Age: 20 Year
  Sex: Male

DRUGS (14)
  1. DIANEAL LOW CALCIUM [Suspect]
     Indication: PERITONEAL DIALYSIS
     Route: 033
     Dates: start: 201310
  2. DIANEAL LOW CALCIUM [Suspect]
     Route: 033
  3. DIANEAL LOW CALCIUM [Suspect]
     Indication: PERITONEAL DIALYSIS
     Route: 033
     Dates: start: 201310
  4. DIANEAL LOW CALCIUM [Suspect]
     Route: 033
  5. AMLODIPINE [Concomitant]
     Indication: SYSTEMIC LUPUS ERYTHEMATOSUS
     Route: 048
  6. ASPIRIN [Concomitant]
     Indication: SYSTEMIC LUPUS ERYTHEMATOSUS
     Route: 048
  7. CALCIUM ACETATE [Concomitant]
     Indication: RENAL FAILURE CHRONIC
     Route: 048
  8. FERROUS SULFATE [Concomitant]
     Indication: RENAL FAILURE CHRONIC
     Route: 048
  9. FOLIC ACID [Concomitant]
     Indication: RENAL FAILURE CHRONIC
     Route: 048
  10. PREDNISONE [Concomitant]
     Indication: SYSTEMIC LUPUS ERYTHEMATOSUS
     Route: 048
  11. LASIX [Concomitant]
     Indication: RENAL FAILURE CHRONIC
     Route: 048
  12. LOSARTAN [Concomitant]
     Indication: SYSTEMIC LUPUS ERYTHEMATOSUS
     Route: 048
  13. VITAMIN D [Concomitant]
     Indication: SYSTEMIC LUPUS ERYTHEMATOSUS
     Dosage: 2000 UNITS
     Route: 048
  14. PLAQUENIL [Concomitant]
     Indication: SYSTEMIC LUPUS ERYTHEMATOSUS
     Route: 048

REACTIONS (3)
  - Systemic lupus erythematosus [Recovering/Resolving]
  - Haematochezia [Recovered/Resolved]
  - Abdominal distension [Recovering/Resolving]
